FAERS Safety Report 17542517 (Version 1)
Quarter: 2020Q1

REPORT INFORMATION
  Report Type: Spontaneous
  Country: US (occurrence: US)
  Receive Date: 20200314
  Receipt Date: 20200314
  Transmission Date: 20200409
  Serious: No
  Sender: FDA-Public Use
  Company Number: US-009507513-2003USA001164

PATIENT
  Sex: Female

DRUGS (10)
  1. PRAVASTATIN. [Suspect]
     Active Substance: PRAVASTATIN
     Indication: BLOOD CHOLESTEROL
     Dosage: UNK
  2. LOVASTATIN. [Suspect]
     Active Substance: LOVASTATIN
     Dosage: UNK
     Dates: start: 2015
  3. DETROL LA [Suspect]
     Active Substance: TOLTERODINE TARTRATE
     Dosage: 4 MILLIGRAM
     Route: 048
     Dates: start: 2012
  4. TOVIAZ [Suspect]
     Active Substance: FESOTERODINE FUMARATE
     Dosage: UNK
  5. VESICARE [Suspect]
     Active Substance: SOLIFENACIN SUCCINATE
     Dosage: UNK
  6. ZETIA [Suspect]
     Active Substance: EZETIMIBE
     Indication: BLOOD CHOLESTEROL
     Dosage: UNK
     Route: 048
  7. DETROL [Suspect]
     Active Substance: TOLTERODINE TARTRATE
     Dosage: 2 MILLIGRAM
     Dates: end: 2012
  8. OXYBUTYNIN. [Suspect]
     Active Substance: OXYBUTYNIN CHLORIDE
     Dosage: UNK
  9. PRAVASTATIN. [Suspect]
     Active Substance: PRAVASTATIN
     Dosage: 0.5 DOSAGE FORM
  10. ENABLEX [Suspect]
     Active Substance: DARIFENACIN HYDROBROMIDE
     Dosage: UNK

REACTIONS (17)
  - Pain in extremity [Unknown]
  - Chest pain [Unknown]
  - Amnesia [Unknown]
  - Malaise [Unknown]
  - Hypotension [Unknown]
  - Hypokinesia [Unknown]
  - Musculoskeletal chest pain [Unknown]
  - Adverse event [Unknown]
  - Flushing [Unknown]
  - Arthralgia [Unknown]
  - Hypersensitivity [Unknown]
  - Blood pressure fluctuation [Unknown]
  - Oropharyngeal discomfort [Unknown]
  - Extrasystoles [Unknown]
  - Feeling abnormal [Unknown]
  - Gastrooesophageal reflux disease [Unknown]
  - Myalgia [Unknown]
